FAERS Safety Report 5248715-X (Version None)
Quarter: 2007Q1

REPORT INFORMATION
  Report Type: 
  Country: None (occurrence: None)
  Receive Date: 20070228
  Receipt Date: 20070220
  Transmission Date: 20070707
  Serious: Yes (Congenital Anomaly)
  Sender: FDA-Public Use
  Company Number: US-JNJFOC-20070204851

PATIENT

DRUGS (3)
  1. INFLIXIMAB [Suspect]
     Indication: TRANSMISSION OF DRUG VIA SEMEN
  2. AZATHIOPRINE [Concomitant]
  3. MESALAMINE [Concomitant]

REACTIONS (1)
  - TORTICOLLIS [None]
